FAERS Safety Report 4958961-8 (Version None)
Quarter: 2006Q1

REPORT INFORMATION
  Report Type: 
  Country: None (occurrence: None)
  Receive Date: 20060327
  Receipt Date: 20060314
  Transmission Date: 20060701
  Serious: Yes (Hospitalization, Other)
  Sender: FDA-Public Use
  Company Number: LTI2004A00124

PATIENT
  Age: 55 Year
  Sex: Male

DRUGS (9)
  1. GLICLAZIDE             (GLICLAZIDE) [Suspect]
     Indication: DIABETES MELLITUS NON-INSULIN-DEPENDENT
     Dosage: 2 DF (1 DF, 2 IN 1 D) ORAL; SEE IMAGE
     Route: 048
     Dates: start: 20030523, end: 20040318
  2. GLICLAZIDE             (GLICLAZIDE) [Suspect]
     Indication: DIABETES MELLITUS NON-INSULIN-DEPENDENT
     Dosage: 2 DF (1 DF, 2 IN 1 D) ORAL; SEE IMAGE
     Route: 048
     Dates: start: 20030319, end: 20040525
  3. METFORMINE (METFORMIN) [Concomitant]
  4. NISISCO (CO-DIOVAN) [Concomitant]
  5. HYPERIUM (RILMENIDINE) [Concomitant]
  6. ATENOLOL [Concomitant]
  7. TRIMEBUTINE (TRIMEBUTINE) [Concomitant]
  8. EFFEXOR [Concomitant]
  9. ALLOPURINOL [Concomitant]

REACTIONS (7)
  - DIABETES MELLITUS INADEQUATE CONTROL [None]
  - DISEASE PROGRESSION [None]
  - GLYCOSYLATED HAEMOGLOBIN INCREASED [None]
  - HEADACHE [None]
  - HYPERHIDROSIS [None]
  - SYNCOPE [None]
  - TINNITUS [None]
